FAERS Safety Report 8530382-0 (Version None)
Quarter: 2012Q3

REPORT INFORMATION
  Report Type: 
  Country: None (occurrence: None)
  Receive Date: 20120723
  Receipt Date: 20120713
  Transmission Date: 20120928
  Serious: Yes (Death, Hospitalization)
  Sender: FDA-Public Use
  Company Number: FR-CELGENEUS-056-21880-11080687

PATIENT
  Sex: Female

DRUGS (4)
  1. REVLIMID [Suspect]
     Dosage: 10 MILLIGRAM
     Route: 048
     Dates: start: 20070326, end: 20110126
  2. NICARDIPINE HCL [Concomitant]
     Indication: HYPERTENSION
     Dosage: 40 MILLIGRAM
     Route: 048
     Dates: start: 20000101
  3. DUPHASTON [Concomitant]
     Indication: PROPHYLAXIS
     Dosage: 2 CAPSULE
     Route: 048
  4. LEVOTHYROXINE SODIUM [Concomitant]
     Indication: HYPOTHYROIDISM
     Dosage: 75 MICROGRAM
     Route: 048

REACTIONS (1)
  - ACUTE LYMPHOCYTIC LEUKAEMIA [None]
